FAERS Safety Report 7081263-3 (Version None)
Quarter: 2010Q4

REPORT INFORMATION
  Report Type: 
  Country: None (occurrence: None)
  Receive Date: 20101103
  Receipt Date: 20101020
  Transmission Date: 20110411
  Serious: Yes (Hospitalization)
  Sender: FDA-Public Use
  Company Number: US-WATSON-2010-14212

PATIENT
  Age: 12 Year
  Sex: Male

DRUGS (1)
  1. FLUVOXAMINE MALEATE [Suspect]
     Indication: OBSESSIVE-COMPULSIVE DISORDER
     Dosage: 150 MG, DAILY
     Route: 048
     Dates: start: 20090401

REACTIONS (1)
  - DISINHIBITION [None]
